FAERS Safety Report 14935031 (Version 1)
Quarter: 2018Q2

REPORT INFORMATION
  Report Type: Spontaneous
  Country: US (occurrence: US)
  Receive Date: 20180506
  Receipt Date: 20180506
  Transmission Date: 20180711
  Serious: Yes (Other)
  Sender: FDA-Public Use
  Company Number: None

PATIENT
  Age: 56 Year
  Sex: Female
  Weight: 97.2 kg

DRUGS (3)
  1. ONE A DAY 50 PLUS WOMEN VITAMIN [Concomitant]
  2. TRAMADOL. [Suspect]
     Active Substance: TRAMADOL
     Indication: SPONDYLITIS
     Dosage: ?          QUANTITY:1 TABLET(S);?
     Route: 048
     Dates: start: 20171201, end: 20180505
  3. LEXITROL [Concomitant]

REACTIONS (1)
  - Alopecia [None]
